FAERS Safety Report 15649716 (Version 1)
Quarter: 2018Q4

REPORT INFORMATION
  Report Type: Spontaneous
  Country: US (occurrence: US)
  Receive Date: 20181122
  Receipt Date: 20181122
  Transmission Date: 20190205
  Serious: Yes (Other)
  Sender: FDA-Public Use
  Company Number: PHHY2018US135435

PATIENT
  Age: 39 Year
  Sex: Female

DRUGS (5)
  1. VANCOMYCIN [Suspect]
     Active Substance: VANCOMYCIN
     Indication: ENDOCARDITIS PROPHYLAXIS
     Dosage: UNK
     Route: 005
  2. HEPARIN [Concomitant]
     Active Substance: HEPARIN SODIUM
     Indication: PROPHYLAXIS
     Dosage: UNK
     Route: 065
  3. MYCOPHENOLATE MOFETIL. [Concomitant]
     Active Substance: MYCOPHENOLATE MOFETIL
     Indication: PRODUCT USED FOR UNKNOWN INDICATION
     Dosage: UNK
     Route: 065
  4. CIPROFLOXACIN. [Concomitant]
     Active Substance: CIPROFLOXACIN
     Indication: ENDOCARDITIS PROPHYLAXIS
     Dosage: UNK
     Route: 065
  5. GENTAMYCIN [Concomitant]
     Active Substance: GENTAMICIN
     Indication: ENDOCARDITIS PROPHYLAXIS
     Dosage: UNK
     Route: 065

REACTIONS (2)
  - Bacteraemia [Unknown]
  - Drug resistance [Unknown]
